FAERS Safety Report 6244888-0 (Version None)
Quarter: 2009Q2

REPORT INFORMATION
  Report Type: 
  Country: None (occurrence: None)
  Receive Date: 20090625
  Receipt Date: 20090610
  Transmission Date: 20091009
  Serious: Yes (Life-Threatening, Hospitalization)
  Sender: FDA-Public Use
  Company Number: B0580381A

PATIENT
  Sex: Male

DRUGS (11)
  1. ARTIST [Suspect]
     Indication: DRUG USE FOR UNKNOWN INDICATION
     Dosage: 2.5MG TWICE PER DAY
     Route: 048
     Dates: end: 20090327
  2. OLMETEC [Suspect]
     Indication: HYPERTENSION
     Dosage: 40MG PER DAY
     Route: 048
     Dates: start: 20060101, end: 20090406
  3. PROGLUMETACIN [Suspect]
     Indication: DRUG USE FOR UNKNOWN INDICATION
     Dosage: 9MG THREE TIMES PER DAY
     Route: 048
     Dates: start: 20090310, end: 20090327
  4. INDAPAMIDE [Concomitant]
     Indication: DRUG USE FOR UNKNOWN INDICATION
     Route: 065
     Dates: end: 20090327
  5. WYTENS [Concomitant]
     Indication: DRUG USE FOR UNKNOWN INDICATION
     Route: 065
     Dates: end: 20090327
  6. EPADEL [Concomitant]
     Indication: DRUG USE FOR UNKNOWN INDICATION
     Route: 065
     Dates: end: 20090327
  7. MAGMITT [Concomitant]
     Indication: DRUG USE FOR UNKNOWN INDICATION
     Route: 065
     Dates: start: 20090310, end: 20090327
  8. JEOASE [Concomitant]
     Indication: DRUG USE FOR UNKNOWN INDICATION
     Route: 065
     Dates: start: 20090310, end: 20090327
  9. ALANTA [Concomitant]
     Indication: DRUG USE FOR UNKNOWN INDICATION
     Route: 065
     Dates: start: 20090310, end: 20090327
  10. TAKEPRON [Concomitant]
     Indication: DRUG USE FOR UNKNOWN INDICATION
     Route: 065
     Dates: start: 20090310, end: 20090327
  11. CALBLOCK [Concomitant]
     Indication: DRUG USE FOR UNKNOWN INDICATION
     Route: 065
     Dates: end: 20090327

REACTIONS (5)
  - BRADYCARDIA [None]
  - FALL [None]
  - HYPERKALAEMIA [None]
  - RENAL FAILURE [None]
  - SPINAL COMPRESSION FRACTURE [None]
